FAERS Safety Report 21340038 (Version 4)
Quarter: 2022Q4

REPORT INFORMATION
  Report Type: Spontaneous
  Country: US (occurrence: US)
  Receive Date: 20220915
  Receipt Date: 20221118
  Transmission Date: 20230113
  Serious: Yes (Hospitalization)
  Sender: FDA-Public Use
  Company Number: US-SAREPTA THERAPEUTICS INC.-SRP2022-002559

PATIENT
  Age: 4 Year
  Sex: Male
  Weight: 18.32 kg

DRUGS (18)
  1. EXONDYS 51 [Suspect]
     Active Substance: ETEPLIRSEN
     Indication: Duchenne muscular dystrophy
     Dosage: 400 MILLIGRAM WEEKLY
     Route: 042
     Dates: start: 20210812, end: 20220819
  2. EXONDYS 51 [Suspect]
     Active Substance: ETEPLIRSEN
     Dosage: 400 MILLIGRAM, WEEKLY
     Route: 042
     Dates: start: 20220831
  3. EXONDYS 51 [Suspect]
     Active Substance: ETEPLIRSEN
     Dosage: 400 MILLIGRAM, WEEKLY
     Route: 042
     Dates: start: 20220909
  4. BIOTIN [Concomitant]
     Active Substance: BIOTIN
     Indication: Vitamin supplementation
     Dosage: 5 MG/ML, 15 MG/3 ML, QD
     Route: 048
     Dates: start: 20210602
  5. CETIRIZINE [Concomitant]
     Active Substance: CETIRIZINE HYDROCHLORIDE
     Indication: Hypersensitivity
     Dosage: 5 MG/5 ML, QD
     Route: 048
     Dates: start: 20220603
  6. FLUTICASONE [Concomitant]
     Active Substance: FLUTICASONE
     Indication: Nasal congestion
     Dosage: 1 SPRAY/NOSTRIL AT BEDTIME, QD
     Route: 045
     Dates: start: 20211006
  7. FLUTICASONE [Concomitant]
     Active Substance: FLUTICASONE
     Indication: Hypersensitivity
  8. MELATONIN [Concomitant]
     Active Substance: MELATONIN
     Indication: Sleep disorder
     Dosage: 1 GUMMY/0.25 MG AT NIGHT, QD
     Route: 048
     Dates: start: 20211209
  9. TYLENOL [Concomitant]
     Active Substance: ACETAMINOPHEN
     Indication: Pyrexia
     Dosage: 160 MG/5ML, 3 ML Q4H, PRN
     Route: 048
     Dates: start: 20211209
  10. TYLENOL [Concomitant]
     Active Substance: ACETAMINOPHEN
     Indication: Pain
  11. TYLENOL [Concomitant]
     Active Substance: ACETAMINOPHEN
     Indication: Prophylaxis
  12. ALBUTEROL [Concomitant]
     Active Substance: ALBUTEROL
     Indication: Cough
     Dosage: 2.5 MG/3 ML (0.083%) INH SOLUTION, 3 ML INH Q4H PRN
     Dates: start: 20220603
  13. ALBUTEROL [Concomitant]
     Active Substance: ALBUTEROL
     Indication: Wheezing
  14. BENADRYL ALLERGY [Concomitant]
     Active Substance: DIPHENHYDRAMINE HYDROCHLORIDE
     Indication: Prophylaxis
     Dosage: 12.5 MG/5 ML ORAL LIQUID, 6.25 MG TO 12.5 MG FOR PRE-INFUSION OF WEEKLY EXONDYS 51
     Route: 048
     Dates: start: 20211209
  15. DIPHENHYDRAMINE [Concomitant]
     Active Substance: DIPHENHYDRAMINE
     Indication: Anaphylactic reaction
     Dosage: 50 MG/ML INJ. SOL., 23.275 MG/47 ML INJ SLOW IV PUSH, PRN
     Route: 042
     Dates: start: 20210826
  16. EPINEPHRINE [Concomitant]
     Active Substance: EPINEPHRINE
     Indication: Anaphylactic reaction
     Dosage: 1 MG/ML, 0.133 MG, PRN
     Route: 030
     Dates: start: 20210826
  17. MAGNESIUM CREAM [Concomitant]
     Indication: Muscle spasms
     Dosage: 1 APP, PRN TO LEGS
     Dates: start: 20211209
  18. MAGNESIUM CREAM [Concomitant]
     Indication: Pain

REACTIONS (6)
  - Tonsillar hypertrophy [Recovered/Resolved]
  - Adenoidal hypertrophy [Recovered/Resolved]
  - Cerumen impaction [Recovered/Resolved]
  - COVID-19 [Unknown]
  - Device dislocation [Unknown]
  - Product dose omission issue [Unknown]

NARRATIVE: CASE EVENT DATE: 20220526
